FAERS Safety Report 24824334 (Version 3)
Quarter: 2025Q1

REPORT INFORMATION
  Report Type: Spontaneous
  Country: DE (occurrence: DE)
  Receive Date: 20250109
  Receipt Date: 20250110
  Transmission Date: 20250409
  Serious: Yes (Other)
  Sender: MERCK
  Company Number: DE-Axellia-005387

PATIENT
  Age: 65 Year
  Sex: Male

DRUGS (2)
  1. DAPTOMYCIN [Suspect]
     Active Substance: DAPTOMYCIN
     Indication: Prosthetic valve endocarditis
     Dosage: 850 MILLIGRAM, QD
  2. DAPTOMYCIN [Suspect]
     Active Substance: DAPTOMYCIN
     Indication: Endocarditis staphylococcal
     Dosage: 700 MILLIGRAM, QD

REACTIONS (3)
  - Eosinophilic pneumonia [Recovering/Resolving]
  - Acute respiratory failure [Recovering/Resolving]
  - Product use in unapproved indication [Unknown]
